FAERS Safety Report 9129359 (Version 1)
Quarter: 2013Q1

REPORT INFORMATION
  Report Type: Spontaneous
  Country: US (occurrence: US)
  Receive Date: 20130228
  Receipt Date: 20130228
  Transmission Date: 20140127
  Serious: No
  Sender: FDA-Public Use
  Company Number: US-ASTRAZENECA-2013SE10942

PATIENT
  Age: 48 Year
  Sex: Male
  Weight: 88.5 kg

DRUGS (4)
  1. CRESTOR [Suspect]
     Indication: BLOOD CHOLESTEROL INCREASED
     Route: 048
     Dates: start: 2011, end: 201302
  2. CRESTOR [Suspect]
     Indication: BLOOD CHOLESTEROL
     Route: 048
     Dates: start: 2011, end: 201302
  3. VITAMIN SUPPLEMENTS [Concomitant]
     Indication: MEDICAL DIET
  4. RED RICE YEAST [Concomitant]

REACTIONS (2)
  - Myalgia [Not Recovered/Not Resolved]
  - Intentional drug misuse [Unknown]
